FAERS Safety Report 10919146 (Version 3)
Quarter: 2015Q3

REPORT INFORMATION
  Report Type: Spontaneous
  Country: JP (occurrence: JP)
  Receive Date: 20150316
  Receipt Date: 20150723
  Transmission Date: 20151125
  Serious: Yes (Death, Hospitalization, Other)
  Sender: FDA-Public Use
  Company Number: JP-MYLANLABS-2015M1006847

PATIENT

DRUGS (10)
  1. LIPIODOL [Suspect]
     Active Substance: ETHIODIZED OIL
     Indication: TRANSCATHETER ARTERIAL CHEMOEMBOLISATION
  2. CEFTAZIDIME. [Concomitant]
     Active Substance: CEFTAZIDIME
     Indication: INFECTION PROPHYLAXIS
     Dosage: 1 G, BID
     Route: 042
     Dates: start: 20150108, end: 20150114
  3. MINOFIT [Concomitant]
     Active Substance: CYSTEINE\GLYCINE\GLYCYRRHIZIN
     Indication: HEPATIC CIRRHOSIS
     Dosage: 60 ML, QD
     Route: 042
     Dates: start: 20150106, end: 20150125
  4. CHICHINA [Concomitant]
     Indication: HAEMORRHAGE PROPHYLAXIS
     Dosage: 50 MG, BID
     Route: 042
     Dates: start: 20150108, end: 20150108
  5. EPIRUBICIN HYDROCHLORIDE INJECTION 10MG ^NK^ [Suspect]
     Active Substance: EPIRUBICIN HYDROCHLORIDE
     Indication: TRANSCATHETER ARTERIAL CHEMOEMBOLISATION
  6. RIBAVARIN [Concomitant]
     Active Substance: RIBAVIRIN
     Indication: HAEMORRHAGE PROPHYLAXIS
     Dosage: 500 MG, BID
     Route: 042
     Dates: start: 20150108, end: 20150108
  7. EPIRUBICIN HYDROCHLORIDE INJECTION 10MG ^NK^ [Suspect]
     Active Substance: EPIRUBICIN HYDROCHLORIDE
     Indication: HEPATIC CANCER STAGE III
     Dosage: 40 MG, QD
     Route: 013
     Dates: start: 20150108
  8. CRAVIT [Suspect]
     Active Substance: LEVOFLOXACIN
     Indication: INFECTION PROPHYLAXIS
     Dosage: 500 MG, QD
     Route: 048
     Dates: start: 20150119, end: 20150124
  9. LIPIODOL [Suspect]
     Active Substance: ETHIODIZED OIL
     Indication: HEPATIC CANCER STAGE III
     Dosage: 192 MG, QD
     Route: 013
     Dates: start: 20150108, end: 20150108
  10. AZASETRON HYDROCHLORIDE [Concomitant]
     Active Substance: AZASETRON HYDROCHLORIDE
     Indication: PROPHYLAXIS OF NAUSEA AND VOMITING
     Dosage: 10 MG, QD
     Route: 042
     Dates: start: 20150108, end: 20150108

REACTIONS (3)
  - Therapeutic response decreased [Unknown]
  - Interstitial lung disease [Fatal]
  - Disseminated intravascular coagulation [Fatal]

NARRATIVE: CASE EVENT DATE: 20150129
